FAERS Safety Report 9925000 (Version 1)
Quarter: 2014Q1

REPORT INFORMATION
  Report Type: Spontaneous
  Country: US (occurrence: None)
  Receive Date: 20140224
  Receipt Date: 20140224
  Transmission Date: 20141002
  Serious: No
  Sender: FDA-Public Use
  Company Number: None

PATIENT
  Age: 35 Year
  Sex: Female
  Weight: 121.11 kg

DRUGS (1)
  1. DULOXETINE [Suspect]
     Route: 048
     Dates: start: 20140207, end: 20140220

REACTIONS (2)
  - Anxiety [None]
  - Product substitution issue [None]
